FAERS Safety Report 21733660 (Version 5)
Quarter: 2023Q2

REPORT INFORMATION
  Report Type: Report from Study
  Country: JP (occurrence: JP)
  Receive Date: 20221215
  Receipt Date: 20230627
  Transmission Date: 20230721
  Serious: Yes (Hospitalization)
  Sender: FDA-Public Use
  Company Number: JP-BAXTER-2022BAX030689

PATIENT
  Age: 55 Year
  Sex: Female
  Weight: 45 kg

DRUGS (6)
  1. DOXORUBICIN [Suspect]
     Active Substance: DOXORUBICIN
     Dosage: UNK, Q2W
     Route: 042
  2. CYCLOPHOSPHAMIDE [Suspect]
     Active Substance: CYCLOPHOSPHAMIDE
     Indication: Triple negative breast cancer
     Dosage: 834 MG, Q2W, (DOSE-DENSE EC THERAPY)
     Route: 042
     Dates: start: 20221122, end: 20221122
  3. EPIRUBICIN HYDROCHLORIDE [Suspect]
     Active Substance: EPIRUBICIN HYDROCHLORIDE
     Indication: Triple negative breast cancer
     Dosage: 125 MG, Q2W, (DOSE-DENSE EC THERAPY)
     Route: 042
     Dates: start: 20221122, end: 20221122
  4. PACLITAXEL [Concomitant]
     Active Substance: PACLITAXEL
     Indication: Triple negative breast cancer
     Dosage: 88 MG, QW
     Route: 042
     Dates: start: 20220802
  5. PEGFILGRASTIM [Concomitant]
     Active Substance: PEGFILGRASTIM
     Dosage: 3.6 MG, Q2W, GENETICAL RECOMBINATION
     Route: 058
     Dates: start: 20221124, end: 20221124
  6. ATEZOLIZUMAB [Concomitant]
     Active Substance: ATEZOLIZUMAB
     Indication: Triple negative breast cancer
     Dosage: GENETICAL RECOMBINATION
     Route: 042
     Dates: start: 20220802

REACTIONS (1)
  - Dehydration [Recovered/Resolved]

NARRATIVE: CASE EVENT DATE: 20221203
